FAERS Safety Report 4649053-6 (Version None)
Quarter: 2005Q2

REPORT INFORMATION
  Report Type: 
  Country: None (occurrence: None)
  Receive Date: 20050429
  Receipt Date: 20050418
  Transmission Date: 20051028
  Serious: Yes (Hospitalization)
  Sender: FDA-Public Use
  Company Number: FR-JNJFOC-20050404060

PATIENT
  Age: 34 Year
  Sex: Female

DRUGS (2)
  1. EPITOMAX [Suspect]
     Indication: EPILEPSY
     Route: 049
  2. DEPAKENE [Concomitant]
     Route: 065

REACTIONS (4)
  - HYPERAMMONAEMIA [None]
  - NAUSEA [None]
  - STATUS EPILEPTICUS [None]
  - VOMITING [None]
